FAERS Safety Report 7215360-6 (Version None)
Quarter: 2011Q1

REPORT INFORMATION
  Report Type: 
  Country: None (occurrence: None)
  Receive Date: 20110107
  Receipt Date: 20110103
  Transmission Date: 20110831
  Serious: Yes (Hospitalization)
  Sender: FDA-Public Use
  Company Number: US-ABBOTT-11P-163-0695260-00

PATIENT
  Sex: Female

DRUGS (3)
  1. PRILOSEC [Concomitant]
     Indication: PRODUCT USED FOR UNKNOWN INDICATION
  2. HUMIRA [Suspect]
     Indication: COLITIS ULCERATIVE
     Dates: start: 20101001
  3. MAXALT [Concomitant]
     Indication: MIGRAINE

REACTIONS (2)
  - RECTAL HAEMORRHAGE [None]
  - CROHN'S DISEASE [None]
